FAERS Safety Report 25534706 (Version 1)
Quarter: 2025Q3

REPORT INFORMATION
  Report Type: Spontaneous
  Country: US (occurrence: None)
  Receive Date: 20250709
  Receipt Date: 20250709
  Transmission Date: 20251021
  Serious: Yes (Death, Hospitalization)
  Sender: FDA-CTU
  Company Number: None

PATIENT
  Age: 75 Year
  Sex: Male
  Weight: 69.7 kg

DRUGS (4)
  1. CARBOPLATIN [Suspect]
     Active Substance: CARBOPLATIN
  2. TAXOL [Suspect]
     Active Substance: PACLITAXEL
  3. ABIXABAN [Concomitant]
  4. VORICONAZOLE [Concomitant]
     Active Substance: VORICONAZOLE

REACTIONS (25)
  - Anaemia [None]
  - Hypoxia [None]
  - Surgery [None]
  - Respiratory failure [None]
  - Haemoptysis [None]
  - Pyrexia [None]
  - Chills [None]
  - Nasal congestion [None]
  - Pulmonary artery occlusion [None]
  - Atrial fibrillation [None]
  - Pneumonia [None]
  - Infection in an immunocompromised host [None]
  - Metastatic neoplasm [None]
  - Pulmonary embolism [None]
  - Pneumothorax [None]
  - Bronchopulmonary aspergillosis [None]
  - Drug interaction [None]
  - Agitation [None]
  - Increased bronchial secretion [None]
  - Aspergillus infection [None]
  - Lung infiltration [None]
  - Sputum culture positive [None]
  - Culture urine positive [None]
  - Pseudomonas infection [None]
  - Weaning failure [None]

NARRATIVE: CASE EVENT DATE: 20250306
